FAERS Safety Report 4863874-6 (Version None)
Quarter: 2005Q4

REPORT INFORMATION
  Report Type: 
  Country: None (occurrence: None)
  Receive Date: 20051222
  Receipt Date: 20051031
  Transmission Date: 20060501
  Serious: No
  Sender: FDA-Public Use
  Company Number: US-GLAXOSMITHKLINE-A0580289A

PATIENT
  Age: 59 Year
  Sex: Female

DRUGS (2)
  1. FLONASE [Suspect]
     Indication: RHINITIS
     Dosage: 2SPR PER DAY
     Route: 045
     Dates: start: 20051001, end: 20051021
  2. NO CONCURRENT MEDICATION [Concomitant]

REACTIONS (1)
  - DRUG INEFFECTIVE [None]
